FAERS Safety Report 4886172-3 (Version None)
Quarter: 2006Q1

REPORT INFORMATION
  Report Type: 
  Country: None (occurrence: None)
  Receive Date: 20060120
  Receipt Date: 20060112
  Transmission Date: 20060701
  Serious: Yes (Death, Life-Threatening, Hospitalization)
  Sender: FDA-Public Use
  Company Number: BE-GLAXOSMITHKLINE-B0406465A

PATIENT
  Sex: Male

DRUGS (3)
  1. ALKERAN [Suspect]
     Indication: DRUG USE FOR UNKNOWN INDICATION
     Dosage: 200MGM2 UNKNOWN
     Route: 042
     Dates: start: 20060111, end: 20060111
  2. LITICAN [Concomitant]
     Route: 065
  3. TRANXENE [Concomitant]

REACTIONS (4)
  - ANAPHYLACTIC SHOCK [None]
  - CARDIAC ARREST [None]
  - HYPERSENSITIVITY [None]
  - RESPIRATORY ARREST [None]
